FAERS Safety Report 10205258 (Version 1)
Quarter: 2014Q2

REPORT INFORMATION
  Report Type: Spontaneous
  Country: GB (occurrence: GB)
  Receive Date: 20140529
  Receipt Date: 20140529
  Transmission Date: 20141212
  Serious: Yes (Death)
  Sender: FDA-Public Use
  Company Number: GB-TEVA-482945ISR

PATIENT
  Age: 49 Year
  Sex: Male
  Weight: 100 kg

DRUGS (6)
  1. PROPRANOLOL [Suspect]
     Indication: PROPHYLAXIS
     Dosage: INDICATION: VARICEAL PROPHYLAXIS
     Route: 048
  2. CITALOPRAM [Concomitant]
  3. LANSOPRAZOLE [Concomitant]
  4. PARACETAMOL [Concomitant]
  5. TERLIPRESSIN [Concomitant]
  6. THIAMINE [Concomitant]

REACTIONS (1)
  - Toxic epidermal necrolysis [Fatal]
